FAERS Safety Report 10989711 (Version 2)
Quarter: 2015Q2

REPORT INFORMATION
  Report Type: Spontaneous
  Country: DE (occurrence: DE)
  Receive Date: 20150406
  Receipt Date: 20150504
  Transmission Date: 20150821
  Serious: Yes (Other)
  Sender: FDA-Public Use
  Company Number: DE-JNJFOC-20150318613

PATIENT
  Sex: Female

DRUGS (1)
  1. CAELYX [Suspect]
     Active Substance: DOXORUBICIN HYDROCHLORIDE
     Indication: BREAST CANCER METASTATIC
     Route: 042
     Dates: start: 201402, end: 201404

REACTIONS (2)
  - Metastases to liver [Not Recovered/Not Resolved]
  - Drug ineffective [Unknown]
